FAERS Safety Report 6608327-X (Version None)
Quarter: 2010Q1

REPORT INFORMATION
  Report Type: 
  Country: None (occurrence: None)
  Receive Date: 20100301
  Receipt Date: 20100215
  Transmission Date: 20100710
  Serious: Yes (Death)
  Sender: FDA-Public Use
  Company Number: US-JNJFOC-20100208576

PATIENT
  Sex: Male
  Weight: 163.3 kg

DRUGS (4)
  1. FENTANYL-100 [Suspect]
     Indication: DRUG USE FOR UNKNOWN INDICATION
     Dosage: 2 PATCHES
     Route: 062
  2. ACETAMINOPHEN [Concomitant]
  3. ALPRAZOLAM [Concomitant]
  4. HYDROCODONE [Concomitant]

REACTIONS (3)
  - DEATH [None]
  - DRUG LEVEL INCREASED [None]
  - UNRESPONSIVE TO STIMULI [None]
